FAERS Safety Report 4846225-2 (Version None)
Quarter: 2005Q4

REPORT INFORMATION
  Report Type: 
  Country: None (occurrence: None)
  Receive Date: 20051130
  Receipt Date: 20051116
  Transmission Date: 20060501
  Serious: Yes (Hospitalization)
  Sender: FDA-Public Use
  Company Number: TCI2005A04712

PATIENT
  Age: 80 Year
  Sex: Female

DRUGS (8)
  1. ACTOS [Suspect]
     Indication: DIABETES MELLITUS
     Dosage: 30 MG (30 MG, 1 D)  PER ORAL
     Route: 048
     Dates: start: 20050621, end: 20051114
  2. ACTOS [Suspect]
     Indication: DIABETES MELLITUS
     Dosage: 30 MG (30 MG, 1 D)  PER ORAL
     Route: 048
     Dates: start: 20050621
  3. NORVASC [Suspect]
     Dosage: PER ORAL
     Route: 048
  4. BASEN (VOGLIBOSE) [Concomitant]
  5. AMARYL [Concomitant]
  6. DOXAZOSIN MESYLATE [Concomitant]
  7. DIGOXIN [Concomitant]
  8. ALPRAZOLAM [Concomitant]

REACTIONS (6)
  - CARDIAC FAILURE [None]
  - EMPHYSEMA [None]
  - FLUID RETENTION [None]
  - INFECTION [None]
  - NASOPHARYNGITIS [None]
  - PLEURAL EFFUSION [None]
